FAERS Safety Report 6988786-3 (Version None)
Quarter: 2010Q3

REPORT INFORMATION
  Report Type: 
  Country: None (occurrence: None)
  Receive Date: 20100916
  Receipt Date: 20100913
  Transmission Date: 20110219
  Serious: No
  Sender: FDA-Public Use
  Company Number: US-ROXANE LABORATORIES, INC.-2010-RO-01232RO

PATIENT
  Age: 44 Year
  Sex: Female

DRUGS (2)
  1. PREDNISONE [Suspect]
     Indication: RENAL FAILURE
     Dates: start: 20100708
  2. PRAVASTATIN [Concomitant]
     Indication: BLOOD CHOLESTEROL INCREASED

REACTIONS (3)
  - DYSGEUSIA [None]
  - INSOMNIA [None]
  - WEIGHT INCREASED [None]
